FAERS Safety Report 15660075 (Version 4)
Quarter: 2018Q4

REPORT INFORMATION
  Report Type: Spontaneous
  Country: CA (occurrence: CA)
  Receive Date: 20181127
  Receipt Date: 20181224
  Transmission Date: 20190205
  Serious: Yes (Hospitalization, Other)
  Sender: FDA-Public Use
  Company Number: CA-CELLTRION INC.-2017CA016684

PATIENT

DRUGS (21)
  1. INFLECTRA [Suspect]
     Active Substance: INFLIXIMAB-DYYB
     Dosage: 600 MG EVERY  8 WEEKS
     Route: 042
     Dates: start: 20180319, end: 20180319
  2. INFLECTRA [Suspect]
     Active Substance: INFLIXIMAB-DYYB
     Dosage: 600 MG EVERY  8 WEEKS
     Route: 042
     Dates: start: 20180514, end: 20180514
  3. INFLECTRA [Suspect]
     Active Substance: INFLIXIMAB-DYYB
     Dosage: 600 MG (EVERY 6 WEEKS THEN EVERY 8 WEEKS)
     Route: 042
     Dates: start: 20180904
  4. INFLECTRA [Suspect]
     Active Substance: INFLIXIMAB-DYYB
     Dosage: 600 MG (EVERY 6 WEEKS THEN EVERY 8 WEEKS)
     Route: 042
     Dates: start: 20180709
  5. INFLECTRA [Suspect]
     Active Substance: INFLIXIMAB-DYYB
     Dosage: 600 MG (6 VIALS) Q (EVERY) 4 WEEKS;
     Route: 065
     Dates: start: 20181210
  6. IMURAN [Concomitant]
     Active Substance: AZATHIOPRINE
     Dosage: 1 TABLET DAILY FOR 2 WEEKS, THEN ESCALATES TO 2 TABS DAILY FOR 2 WEEKS AND THEN WILL BE ON 3 TABS DA
     Dates: start: 20171114
  7. METRONIDAZOLE. [Concomitant]
     Active Substance: METRONIDAZOLE
     Dosage: 1 DF (TABLET)
     Route: 048
     Dates: start: 20171114
  8. INFLECTRA [Suspect]
     Active Substance: INFLIXIMAB-DYYB
     Indication: CROHN^S DISEASE
     Dosage: 5 MG/KG,  (EVERY 0, 2, 6 WEEKS, THEN EVERY 8 WEEKS)
     Route: 042
     Dates: start: 20171212, end: 20171228
  9. INFLECTRA [Suspect]
     Active Substance: INFLIXIMAB-DYYB
     Dosage: 600 MG (6 VIALS) Q (EVERY) 4 WEEKS;
     Route: 065
  10. INFLECTRA [Suspect]
     Active Substance: INFLIXIMAB-DYYB
     Dosage: 600 MG (6 VIALS) Q (EVERY) 4 WEEKS;
     Route: 065
     Dates: start: 20181127
  11. INFLECTRA [Suspect]
     Active Substance: INFLIXIMAB-DYYB
     Dosage: 600 MG (EVERY 6 WEEKS THEN EVERY 8 WEEKS)
     Route: 042
     Dates: start: 20180709
  12. INFLECTRA [Suspect]
     Active Substance: INFLIXIMAB-DYYB
     Dosage: 600 MG (EVERY 6 WEEKS THEN EVERY 8 WEEKS)
     Route: 042
     Dates: start: 20181030
  13. DULOXETINE. [Concomitant]
     Active Substance: DULOXETINE
     Dosage: 3 CAPSULES DAILY FOR 30 DAYS BY MOUTH
     Route: 048
     Dates: start: 20170913
  14. PANTOLOC                           /01263201/ [Concomitant]
     Active Substance: PANTOPRAZOLE SODIUM
     Dosage: 1 DF (TABLET) DAILY, BEFORE BEDTIME
     Route: 048
  15. INFLECTRA [Suspect]
     Active Substance: INFLIXIMAB-DYYB
     Dosage: 600 MG (EVERY 6 WEEKS THEN EVERY 8 WEEKS)
     Route: 042
     Dates: start: 20180709
  16. INFLECTRA [Suspect]
     Active Substance: INFLIXIMAB-DYYB
     Dosage: 600 MG  EVERY 6 WEEKS, THEN EVERY 8 WEEKS
     Route: 042
     Dates: start: 20180126, end: 20180126
  17. ASACOL [Concomitant]
     Active Substance: MESALAMINE
     Dosage: 8 TABLETS DAILY BY MOUTH
     Route: 048
     Dates: start: 2010
  18. CIPROFLOXACIN. [Concomitant]
     Active Substance: CIPROFLOXACIN
     Dosage: 1 DF (TABLET)
     Route: 048
     Dates: start: 20171114
  19. PREDNISONE. [Concomitant]
     Active Substance: PREDNISONE
     Dosage: 3 TABLETS DAILY BY MOUTH
     Route: 048
     Dates: start: 20171114, end: 201802
  20. INFLECTRA [Suspect]
     Active Substance: INFLIXIMAB-DYYB
     Dosage: 555 MG,  (EVERY 0,2,6 WEEKS, THEN EVERY 8 WEEKS)
     Route: 042
     Dates: start: 20171228, end: 20171228
  21. ABILIFY [Concomitant]
     Active Substance: ARIPIPRAZOLE
     Dosage: 0.5 DF (1/2TABLET) DAILY
     Route: 048
     Dates: start: 20170913

REACTIONS (12)
  - Pneumonia [Unknown]
  - Hyperphagia [Unknown]
  - Alopecia [Unknown]
  - Hypertension [Unknown]
  - Product use issue [Unknown]
  - Glucose tolerance impaired [Unknown]
  - Product use issue [Unknown]
  - Weight increased [Not Recovered/Not Resolved]
  - Abdominal distension [Unknown]
  - Impaired healing [Unknown]
  - Nausea [Unknown]
  - Malaise [Unknown]

NARRATIVE: CASE EVENT DATE: 2017
